FAERS Safety Report 6232664-4 (Version None)
Quarter: 2009Q2

REPORT INFORMATION
  Report Type: 
  Country: None (occurrence: None)
  Receive Date: 20090615
  Receipt Date: 20090603
  Transmission Date: 20091009
  Serious: Yes (Other)
  Sender: FDA-Public Use
  Company Number: US-WYE-H09593709

PATIENT
  Age: 64 Year
  Sex: Female
  Weight: 62.2 kg

DRUGS (7)
  1. TORISEL [Suspect]
     Indication: RENAL CELL CARCINOMA
     Dosage: INTRAVENOUS; 18.8 MG, INTRAVENOUS
     Route: 042
     Dates: start: 20090428, end: 20090428
  2. TORISEL [Suspect]
     Indication: RENAL CELL CARCINOMA
     Dosage: INTRAVENOUS; 18.8 MG, INTRAVENOUS
     Route: 042
     Dates: start: 20090602
  3. PROTONIX [Concomitant]
  4. TAMOXIFEN CITRATE [Concomitant]
  5. LEVOTHYROXINE SODIUM [Concomitant]
  6. COUMADIN [Concomitant]
  7. LEVAQUIN [Concomitant]

REACTIONS (4)
  - BLOOD PRESSURE DECREASED [None]
  - INFUSION RELATED REACTION [None]
  - MALIGNANT PLEURAL EFFUSION [None]
  - OXYGEN SATURATION DECREASED [None]
